FAERS Safety Report 23185850 (Version 1)
Quarter: 2023Q4

REPORT INFORMATION
  Report Type: Spontaneous
  Country: US (occurrence: US)
  Receive Date: 20231115
  Receipt Date: 20231115
  Transmission Date: 20240110
  Serious: No
  Sender: FDA-Public Use
  Company Number: US-OTSUKA-2023_018033

PATIENT
  Sex: Female
  Weight: 45.36 kg

DRUGS (2)
  1. NUEDEXTA [Suspect]
     Active Substance: DEXTROMETHORPHAN HYDROBROMIDE\QUINIDINE SULFATE
     Indication: Hallucination
     Dosage: 1 DF, BID (MORNING AND NIGHT)
     Route: 065
     Dates: start: 202107
  2. MIRTAZAPINE [Concomitant]
     Active Substance: MIRTAZAPINE
     Indication: Product used for unknown indication
     Dosage: 15 MG, QD (AT NIGHT)
     Route: 065

REACTIONS (2)
  - Dry skin [Unknown]
  - Drug effective for unapproved indication [Unknown]
